FAERS Safety Report 4379224-8 (Version None)
Quarter: 2004Q2

REPORT INFORMATION
  Report Type: 
  Country: None (occurrence: None)
  Receive Date: 20040617
  Receipt Date: 20040608
  Transmission Date: 20050107
  Serious: Yes (Death)
  Sender: FDA-Public Use
  Company Number: PHBS2004JP07625

PATIENT
  Age: 57 Year
  Sex: Male

DRUGS (4)
  1. SIMULECT [Suspect]
     Indication: LIVER TRANSPLANT
     Dosage: 20 MG, ONCE/SINGLE
     Route: 042
     Dates: start: 20020909, end: 20020909
  2. SIMULECT [Suspect]
     Dosage: 20 MG, ONCE/SINGLE
     Route: 042
     Dates: start: 20020913, end: 20020913
  3. SOLU-MEDROL [Suspect]
     Indication: LIVER TRANSPLANT
     Dosage: 500-20 MG/D
  4. MYCOPHENOLATE MOFETIL [Suspect]
     Indication: LIVER TRANSPLANT
     Dosage: 2 G/D

REACTIONS (1)
  - PNEUMONIA STAPHYLOCOCCAL [None]
